FAERS Safety Report 7311190-5 (Version None)
Quarter: 2011Q1

REPORT INFORMATION
  Report Type: 
  Country: None (occurrence: None)
  Receive Date: 20110224
  Receipt Date: 20110216
  Transmission Date: 20110831
  Serious: Yes (Hospitalization)
  Sender: FDA-Public Use
  Company Number: FR-ROCHE-760521

PATIENT
  Sex: Female

DRUGS (2)
  1. TAMIFLU [Suspect]
     Indication: INFLUENZA LIKE ILLNESS
     Route: 048
     Dates: start: 20110117, end: 20110122
  2. LEVOTHYROX [Concomitant]
     Dosage: DOSE: 75+25 FREQUENCY: DAILY (ONE IN THE MORNING)

REACTIONS (2)
  - THROMBOCYTOPENIA [None]
  - HEPATITIS [None]
